FAERS Safety Report 14610507 (Version 1)
Quarter: 2018Q1

REPORT INFORMATION
  Report Type: Report from Study
  Country: None (occurrence: FI)
  Receive Date: 20180307
  Receipt Date: 20180307
  Transmission Date: 20180509
  Serious: Yes (Hospitalization)
  Sender: FDA-Public Use
  Company Number: FI-ABBVIE-18K-055-2274630-00

PATIENT
  Age: 71 Year
  Sex: Female

DRUGS (1)
  1. DUODOPA [Suspect]
     Active Substance: CARBIDOPA\LEVODOPA
     Indication: PARKINSON^S DISEASE
     Dosage: MD 3.0 ML;CD 4.6 ML/H FROM 6AM TO 6PM AND 3.5ML/H FROM 6PM TO 6AM. 24H TREATMENT.
     Route: 050

REACTIONS (7)
  - Device loosening [Unknown]
  - Device dislocation [Recovered/Resolved]
  - Parkinson^s disease [Recovering/Resolving]
  - Tremor [Recovering/Resolving]
  - Overdose [Recovering/Resolving]
  - Fall [Unknown]
  - Device dislocation [Unknown]

NARRATIVE: CASE EVENT DATE: 201712
